FAERS Safety Report 9832765 (Version 2)
Quarter: 2014Q2

REPORT INFORMATION
  Report Type: Spontaneous
  Country: US (occurrence: US)
  Receive Date: 20140121
  Receipt Date: 20140404
  Transmission Date: 20141212
  Serious: Yes (Hospitalization)
  Sender: FDA-Public Use
  Company Number: US-GLAXOSMITHKLINE-A1056769A

PATIENT
  Age: 56 Year
  Sex: Male

DRUGS (9)
  1. ADVAIR [Suspect]
     Indication: ASTHMA
     Dosage: 1PUFF PER DAY
     Route: 055
     Dates: start: 2008
  2. COMBIVENT [Concomitant]
  3. LISINOPRIL [Concomitant]
  4. ZANTAC 150 [Concomitant]
  5. ASPIRIN [Concomitant]
  6. METOPROLOL [Concomitant]
  7. NITROGLYCERIN [Concomitant]
  8. EFFIENT [Concomitant]
  9. CRESTOR [Concomitant]

REACTIONS (3)
  - Myocardial infarction [Unknown]
  - Drug administration error [Unknown]
  - Catheterisation cardiac [Unknown]
